FAERS Safety Report 6470757-7 (Version None)
Quarter: 2009Q4

REPORT INFORMATION
  Report Type: 
  Country: None (occurrence: None)
  Receive Date: 20091203
  Receipt Date: 20091126
  Transmission Date: 20100525
  Serious: Yes (Hospitalization)
  Sender: FDA-Public Use
  Company Number: B0603118A

PATIENT
  Sex: Male

DRUGS (2)
  1. REQUIP [Suspect]
     Indication: RESTLESS LEGS SYNDROME
     Dosage: .25MG PER DAY
     Route: 048
     Dates: start: 20060811, end: 20061202
  2. OMEPRAZOLE [Concomitant]
     Indication: PEPTIC ULCER
     Dosage: 400MG PER DAY
     Dates: start: 20090922, end: 20090927

REACTIONS (3)
  - COLD SWEAT [None]
  - DIZZINESS [None]
  - MELAENA [None]
